FAERS Safety Report 14150201 (Version 1)
Quarter: 2017Q4

REPORT INFORMATION
  Report Type: Spontaneous
  Country: US (occurrence: US)
  Receive Date: 20171101
  Receipt Date: 20171101
  Transmission Date: 20180321
  Serious: No
  Sender: FDA-Public Use
  Company Number: US-NOVOPROD-524147

PATIENT
  Age: 56 Year
  Sex: Female

DRUGS (2)
  1. VAGIFEM LD [Suspect]
     Active Substance: ESTRADIOL
     Indication: MENOPAUSE
     Route: 067
     Dates: start: 201509
  2. VAGIFEM LD [Suspect]
     Active Substance: ESTRADIOL
     Indication: VAGINAL DISORDER

REACTIONS (1)
  - Blood cholesterol increased [Not Recovered/Not Resolved]

NARRATIVE: CASE EVENT DATE: 201609
